FAERS Safety Report 5340084-X (Version None)
Quarter: 2007Q2

REPORT INFORMATION
  Report Type: 
  Country: None (occurrence: None)
  Receive Date: 20070529
  Receipt Date: 20070518
  Transmission Date: 20071010
  Serious: Yes (Hospitalization)
  Sender: FDA-Public Use
  Company Number: 2007SP009724

PATIENT
  Age: 22 Year
  Sex: Female

DRUGS (6)
  1. BETAMETHASONE [Suspect]
     Indication: RASH
     Dosage: 8 MCG;QD; PO
     Route: 048
  2. BETAMATHASONE DIPROPIONATE [Suspect]
     Indication: RASH
     Dosage: TOP
     Route: 061
  3. LYMECYCLINE (LYMECYCLINE) [Suspect]
     Indication: ACNE
  4. LEVONORGESTREL AND ETHINYL ESTRADIOL [Concomitant]
  5. LORATADINE [Concomitant]
  6. HYDROXYZINE HYDROCHLORIDE [Concomitant]

REACTIONS (5)
  - HYPOPROTEINAEMIA [None]
  - INFLAMMATION [None]
  - SEPSIS [None]
  - STEVENS-JOHNSON SYNDROME [None]
  - TOXIC EPIDERMAL NECROLYSIS [None]
